FAERS Safety Report 5243554-8 (Version None)
Quarter: 2007Q1

REPORT INFORMATION
  Report Type: 
  Country: None (occurrence: None)
  Receive Date: 20070222
  Receipt Date: 20070212
  Transmission Date: 20070707
  Serious: Yes (Other)
  Sender: FDA-Public Use
  Company Number: PHEH2006US01291

PATIENT
  Age: 52 Year
  Sex: Female
  Weight: 99.773 kg

DRUGS (12)
  1. FARESTON [Concomitant]
  2. COUMADIN [Concomitant]
  3. VITAMIN CAP [Concomitant]
  4. CALCIUM CARBONATE [Concomitant]
  5. MAGNESIUM CARBONATE [Concomitant]
  6. FOLIC ACID [Concomitant]
  7. ASPIRIN [Concomitant]
  8. AREDIA [Suspect]
  9. ZOMETA [Suspect]
     Dosage: UNK, QMO
     Route: 042
     Dates: end: 20040301
  10. FEMARA [Concomitant]
  11. PROZAC [Concomitant]
  12. TAMOXIFEN CITRATE [Suspect]

REACTIONS (63)
  - ABDOMINAL PAIN [None]
  - ABDOMINAL PAIN UPPER [None]
  - ABSCESS [None]
  - ABSCESS JAW [None]
  - ARTERIOSCLEROSIS [None]
  - BACK PAIN [None]
  - BONE DISORDER [None]
  - BONE TRIMMING [None]
  - BREAST PAIN [None]
  - BREAST SWELLING [None]
  - BREATH ODOUR [None]
  - CAROTID ARTERY STENOSIS [None]
  - CHOLELITHIASIS [None]
  - COMPUTERISED TOMOGRAM ABNORMAL [None]
  - COUGH [None]
  - DILATATION VENTRICULAR [None]
  - DIZZINESS [None]
  - DYSGEUSIA [None]
  - DYSPHAGIA [None]
  - ERYTHEMA [None]
  - FACIAL PAIN [None]
  - FISTULA [None]
  - GINGIVAL BLEEDING [None]
  - GINGIVAL DISORDER [None]
  - HEPATIC CYST [None]
  - HYPERBARIC OXYGEN THERAPY [None]
  - IMPAIRED HEALING [None]
  - INFLAMMATION [None]
  - LOOSE TOOTH [None]
  - MASTITIS [None]
  - METASTASES TO BONE [None]
  - MITRAL VALVE INCOMPETENCE [None]
  - MOUTH HAEMORRHAGE [None]
  - NASAL CONGESTION [None]
  - NECROSIS [None]
  - ORAL SOFT TISSUE DISORDER [None]
  - OROANTRAL FISTULA [None]
  - OSTEOMYELITIS [None]
  - OSTEONECROSIS [None]
  - PAIN [None]
  - POSTNASAL DRIP [None]
  - PRESYNCOPE [None]
  - PRIMARY SEQUESTRUM [None]
  - PURULENCE [None]
  - RENAL CYST [None]
  - RESORPTION BONE INCREASED [None]
  - SENSATION OF PRESSURE [None]
  - SENSITIVITY OF TEETH [None]
  - SEQUESTRECTOMY [None]
  - SINUS DISORDER [None]
  - SINUS OPERATION [None]
  - SINUS POLYP DEGENERATION [None]
  - SINUSITIS [None]
  - SWELLING FACE [None]
  - TENDERNESS [None]
  - TOOTH ABSCESS [None]
  - TOOTH DISORDER [None]
  - TOOTH EXTRACTION [None]
  - TOOTH FRACTURE [None]
  - TOOTH INFECTION [None]
  - TRICUSPID VALVE INCOMPETENCE [None]
  - VENTRICULAR HYPERTROPHY [None]
  - WOUND DEBRIDEMENT [None]
